FAERS Safety Report 8061969-X (Version None)
Quarter: 2012Q1

REPORT INFORMATION
  Report Type: 
  Country: None (occurrence: None)
  Receive Date: 20120118
  Receipt Date: 20120109
  Transmission Date: 20120608
  Serious: Yes (Death)
  Sender: FDA-Public Use
  Company Number: JPI-P-002691

PATIENT
  Age: 48 Year
  Sex: Female

DRUGS (8)
  1. VENLAFAXINE HCL [Concomitant]
  2. ACYCLOVIR [Concomitant]
  3. PREGABALIN [Concomitant]
  4. XYREM [Suspect]
     Indication: FIBROMYALGIA
     Dosage: 6 GM (3 GM,2 IN 1 D),ORAL ; 4 GM (2.25 GM,2 IN 1 D),ORAL
     Route: 048
     Dates: start: 20070101, end: 20071124
  5. XYREM [Suspect]
     Indication: SOMNOLENCE
     Dosage: 6 GM (3 GM,2 IN 1 D),ORAL ; 4 GM (2.25 GM,2 IN 1 D),ORAL
     Route: 048
     Dates: start: 20070101, end: 20071124
  6. XYREM [Suspect]
     Indication: FIBROMYALGIA
     Dosage: 6 GM (3 GM,2 IN 1 D),ORAL ; 4 GM (2.25 GM,2 IN 1 D),ORAL
     Route: 048
     Dates: start: 20070906, end: 20070101
  7. XYREM [Suspect]
     Indication: SOMNOLENCE
     Dosage: 6 GM (3 GM,2 IN 1 D),ORAL ; 4 GM (2.25 GM,2 IN 1 D),ORAL
     Route: 048
     Dates: start: 20070906, end: 20070101
  8. CELEXCOXIB [Concomitant]

REACTIONS (9)
  - TOXICITY TO VARIOUS AGENTS [None]
  - POLYMEDICATION [None]
  - DRUG ABUSE [None]
  - ABNORMAL BEHAVIOUR [None]
  - ALCOHOLIC LIVER DISEASE [None]
  - JOINT SURGERY [None]
  - MENTAL DISORDER [None]
  - CHRONIC OBSTRUCTIVE PULMONARY DISEASE [None]
  - POST PROCEDURAL COMPLICATION [None]
